FAERS Safety Report 13277292 (Version 1)
Quarter: 2017Q1

REPORT INFORMATION
  Report Type: Spontaneous
  Country: CN (occurrence: CN)
  Receive Date: 20170228
  Receipt Date: 20170228
  Transmission Date: 20170428
  Serious: Yes (Other)
  Sender: FDA-Public Use
  Company Number: CN-BAUSCH-BL-2017-004830

PATIENT
  Age: 46 Year
  Sex: Male
  Weight: 65 kg

DRUGS (1)
  1. ACICLOVIR EYE DROPS [Suspect]
     Active Substance: ACYCLOVIR
     Indication: KERATITIS VIRAL
     Route: 061
     Dates: start: 20161122, end: 20161122

REACTIONS (4)
  - Lacrimation increased [Recovered/Resolved]
  - Application site erythema [Recovered/Resolved]
  - Photophobia [Recovered/Resolved]
  - Application site pain [Recovered/Resolved]

NARRATIVE: CASE EVENT DATE: 20161122
